FAERS Safety Report 19070518 (Version 3)
Quarter: 2021Q2

REPORT INFORMATION
  Report Type: Spontaneous
  Country: DE (occurrence: DE)
  Receive Date: 20210330
  Receipt Date: 20210422
  Transmission Date: 20210717
  Serious: Yes (Other)
  Sender: FDA-Public Use
  Company Number: DE-AUROBINDO-AUR-APL-2021-009855

PATIENT
  Age: 70 Year
  Sex: Female

DRUGS (1)
  1. ALENDRONIC ACID TABLETS [Suspect]
     Active Substance: ALENDRONIC ACID
     Indication: OSTEITIS DEFORMANS
     Dosage: 70 MILLIGRAM, EVERY WEEK
     Route: 048
     Dates: start: 2014

REACTIONS (5)
  - Osteitis deformans [Unknown]
  - Loose tooth [Recovered/Resolved]
  - Osteonecrosis of jaw [Recovered/Resolved]
  - Tooth loss [Recovered/Resolved]
  - Product use in unapproved indication [Unknown]

NARRATIVE: CASE EVENT DATE: 2014
